FAERS Safety Report 7597644-5 (Version None)
Quarter: 2011Q3

REPORT INFORMATION
  Report Type: 
  Country: None (occurrence: None)
  Receive Date: 20110708
  Receipt Date: 20110630
  Transmission Date: 20111222
  Serious: Yes (Hospitalization)
  Sender: FDA-Public Use
  Company Number: JP-ROCHE-787619

PATIENT
  Sex: Female

DRUGS (16)
  1. PREDNISOLONE [Concomitant]
     Route: 048
     Dates: start: 20110310
  2. NAPROXEN [Concomitant]
     Dosage: FORM: PRE ORAL AGENT
     Route: 048
  3. TOCILIZUMAB [Suspect]
     Route: 041
     Dates: start: 20110506, end: 20110506
  4. PREDNISOLONE [Concomitant]
     Route: 048
     Dates: start: 20110105, end: 20110201
  5. TOCILIZUMAB [Suspect]
     Route: 041
     Dates: start: 20110514, end: 20110617
  6. FUNGIZONE [Concomitant]
     Dosage: FORM: PRE ORAL AGENT
     Route: 048
     Dates: start: 20101210
  7. TOCILIZUMAB [Suspect]
     Route: 041
     Dates: start: 20110430, end: 20110430
  8. PREDNISOLONE [Concomitant]
     Dosage: FORM: PRE ORAL AGENT
     Route: 048
     Dates: start: 20101210, end: 20101228
  9. PREDNISOLONE [Concomitant]
     Route: 048
     Dates: start: 20110202, end: 20110222
  10. TOCILIZUMAB [Suspect]
     Indication: JUVENILE ARTHRITIS
     Route: 041
     Dates: start: 20101225, end: 20110118
  11. PREDNISOLONE [Concomitant]
     Route: 048
     Dates: start: 20101229, end: 20110104
  12. TOCILIZUMAB [Suspect]
     Route: 041
     Dates: start: 20110126, end: 20110223
  13. METHYLPREDNISOLONE SODIUM SUCCINATE [Concomitant]
     Route: 042
     Dates: start: 20101222, end: 20101224
  14. TOCILIZUMAB [Suspect]
     Route: 041
     Dates: start: 20110309, end: 20110420
  15. METHYLPREDNISOLONE SODIUM SUCCINATE [Concomitant]
     Route: 042
     Dates: start: 20101215, end: 20101217
  16. PREDNISOLONE [Concomitant]
     Route: 048
     Dates: start: 20110223, end: 20110309

REACTIONS (2)
  - HISTIOCYTOSIS HAEMATOPHAGIC [None]
  - RASH [None]
